FAERS Safety Report 6918232-7 (Version None)
Quarter: 2010Q3

REPORT INFORMATION
  Report Type: 
  Country: None (occurrence: None)
  Receive Date: 20100809
  Receipt Date: 20100809
  Transmission Date: 20110219
  Serious: Yes (Hospitalization)
  Sender: FDA-Public Use
  Company Number: None

PATIENT
  Age: 52 Year
  Sex: Female
  Weight: 61.7 kg

DRUGS (3)
  1. ERLOTINIB 300 MG / 150 MG GENENTECH [Suspect]
     Indication: SQUAMOUS CELL CARCINOMA
     Dosage: 300 MG / 150 MG DAY 2 / D3-D17 PO
     Route: 048
     Dates: start: 20091126, end: 20100701
  2. CISPLATIN [Suspect]
     Dosage: 75 MG/M2 DAY 1 IV
     Route: 042
     Dates: start: 20091125, end: 20100701
  3. PACLITAXEL [Suspect]
     Dosage: 175 MG/M2 DAY 1 IV
     Route: 042
     Dates: start: 20091125, end: 20100701

REACTIONS (2)
  - PROCEDURAL PAIN [None]
  - PROCEDURAL SITE REACTION [None]
